FAERS Safety Report 12416161 (Version 4)
Quarter: 2018Q1

REPORT INFORMATION
  Report Type: Spontaneous
  Country: FR (occurrence: FR)
  Receive Date: 20160530
  Receipt Date: 20180320
  Transmission Date: 20180508
  Serious: Yes (Hospitalization, Other)
  Sender: FDA-Public Use
  Company Number: FR-PFIZER INC-2016276097

PATIENT
  Age: 43 Year
  Sex: Female

DRUGS (11)
  1. NOCTAMIDE [Suspect]
     Active Substance: LORMETAZEPAM
     Indication: SLEEP DISORDER
     Dosage: 1 DF, DAILY (EVENING)
     Route: 048
  2. ABILIFY [Suspect]
     Active Substance: ARIPIPRAZOLE
     Indication: DEPRESSION
     Dosage: 10 MG, QD
     Route: 048
  3. THERALENE [Suspect]
     Active Substance: TRIMEPRAZINE
     Indication: DEPRESSION
     Dosage: 50 GTT, DAILY (AT BEDTIME)
     Route: 048
     Dates: start: 201601
  4. DAFALGAN CODEINE [Suspect]
     Active Substance: ACETAMINOPHEN\CODEINE PHOSPHATE
     Indication: PAIN
     Dosage: 2 DF, 3X/DAY (MORNING, MIDDAY AND EVENING)
     Route: 048
  5. FLUOXETINE HYDROCHLORIDE. [Suspect]
     Active Substance: FLUOXETINE HYDROCHLORIDE
     Indication: DEPRESSION
     Dosage: 30 MG (1.5 DOSAGE FORM), DAILY (IN MORNING)
     Route: 048
     Dates: start: 201601
  6. LEPTICUR [Suspect]
     Active Substance: TROPATEPINE HYDROCHLORIDE
     Indication: PARKINSONISM
     Dosage: 2 DF, DAILY (MORNING)
     Route: 048
  7. LOXAPAC /00401801/ [Suspect]
     Active Substance: LOXAPINE
     Indication: DEPRESSION
     Dosage: 50 DROPS 5 TIMES DAILY,
     Route: 048
     Dates: start: 201601
  8. SPECIAFOLDINE [Concomitant]
     Active Substance: FOLIC ACID
     Indication: SYSTEMIC LUPUS ERYTHEMATOSUS
     Dosage: 4 DF, WEEKLY (ON WEDNESDAYS)
     Route: 048
  9. IMETH [Suspect]
     Active Substance: METHOTREXATE SODIUM
     Indication: SYSTEMIC LUPUS ERYTHEMATOSUS
     Dosage: 20 MG, WEEKLY
     Route: 048
  10. TRANXENE [Suspect]
     Active Substance: CLORAZEPATE DIPOTASSIUM
     Indication: DEPRESSION
     Dosage: 1 DF, 4X/DAY
     Route: 048
     Dates: start: 201601
  11. PLAQUENIL /00072602/ [Suspect]
     Active Substance: HYDROXYCHLOROQUINE DIPHOSPHATE
     Indication: SYSTEMIC LUPUS ERYTHEMATOSUS
     Dosage: 400 MG, DAILY (200 MG,2 IN 1 D)
     Route: 048

REACTIONS (3)
  - Confusional state [Recovered/Resolved]
  - Anterograde amnesia [Recovered/Resolved]
  - Product use in unapproved indication [Unknown]

NARRATIVE: CASE EVENT DATE: 20160301
